FAERS Safety Report 9682255 (Version 1)
Quarter: 2013Q4

REPORT INFORMATION
  Report Type: Spontaneous
  Country: US (occurrence: US)
  Receive Date: 20131112
  Receipt Date: 20131112
  Transmission Date: 20140711
  Serious: Yes (Hospitalization)
  Sender: FDA-Public Use
  Company Number: US-PFIZER INC-2013319160

PATIENT
  Age: 61 Year
  Sex: Male

DRUGS (2)
  1. GABAPENTIN [Suspect]
     Dosage: HIGH DOSE
  2. OXYCODONE [Concomitant]
     Dosage: HIGH DOSE

REACTIONS (9)
  - Withdrawal syndrome [Unknown]
  - Nausea [Unknown]
  - Vomiting [Unknown]
  - Hyperhidrosis [Unknown]
  - Myalgia [Unknown]
  - Restlessness [Recovered/Resolved]
  - Blood pressure increased [Unknown]
  - Confusional state [Recovered/Resolved]
  - Tremor [Unknown]
